FAERS Safety Report 7022343-8 (Version None)
Quarter: 2010Q3

REPORT INFORMATION
  Report Type: 
  Country: None (occurrence: None)
  Receive Date: 20100930
  Receipt Date: 20100928
  Transmission Date: 20110219
  Serious: Yes (Other)
  Sender: FDA-Public Use
  Company Number: GB-WYE-G06733310

PATIENT
  Age: 60 Year
  Sex: Female
  Weight: 100 kg

DRUGS (33)
  1. TIGECYCLINE [Suspect]
     Indication: NEUTROPENIC SEPSIS
     Route: 042
     Dates: start: 20100913, end: 20100915
  2. ATENOLOL [Concomitant]
     Dosage: UNKNOWN
  3. BENDROFLUAZIDE [Concomitant]
     Dosage: UNKNOWN
  4. CLINDAMYCIN [Concomitant]
     Dosage: UNKNOWN
  5. CLONAZEPAM [Concomitant]
     Dosage: UNKNOWN
  6. CYCLIZINE [Concomitant]
     Dosage: UNKNOWN
  7. DICLOFENAC SODIUM [Concomitant]
     Dosage: UNKNOWN
  8. DEXAMETHASONE [Concomitant]
     Dosage: UNKNOWN
  9. HEPARIN SODIUM [Concomitant]
     Dosage: UNKNOWN
  10. FLUOXETINE HYDROCHLORIDE [Concomitant]
     Dosage: UNKNOWN
  11. GENTAMICIN [Concomitant]
     Dosage: UNKNOWN
  12. GLICLAZIDE [Concomitant]
     Dosage: UNKNOWN
  13. GRANOCYTE [Concomitant]
     Dosage: UNKNOWN
  14. HYDROCORTISONE [Concomitant]
     Dosage: UNKNOWN
  15. KETAMINE HYDROCHLORIDE [Concomitant]
     Dosage: UNKNOWN
  16. LACTULOSE [Concomitant]
     Dosage: UNKNOWN
  17. MELPHALAN HYDROCHLORIDE [Concomitant]
     Dosage: UNKNOWN
  18. METFORMIN [Concomitant]
     Dosage: UNKNOWN
  19. MORPHINE SULFATE [Concomitant]
     Dosage: UNKNOWN
  20. MS CONTIN [Concomitant]
     Dosage: UNKNOWN
  21. OMEPRAZOLE [Concomitant]
     Dosage: UNKNOWN
  22. ONDANSETRON [Concomitant]
     Dosage: UNKNOWN
  23. OXYCODONE HCL [Concomitant]
     Dosage: UNKNOWN
  24. PARACETAMOL [Concomitant]
     Dosage: UNKNOWN
  25. ACTOS [Concomitant]
     Dosage: UNKNOWN
  26. RAMIPRIL [Concomitant]
     Dosage: UNKNOWN
  27. SALBUTAMOL [Concomitant]
     Dosage: UNKNOWN
  28. SENNA [Concomitant]
     Dosage: UNKNOWN
  29. SEVREDOL [Concomitant]
     Dosage: UNKNOWN
  30. SIMVASTATIN [Concomitant]
     Dosage: UNKNOWN
  31. TEMAZEPAM [Concomitant]
     Dosage: UNKNOWN
  32. PREGABALIN [Concomitant]
     Dosage: UNKNOWN
  33. ACETYLSALICYLIC ACID SRT [Concomitant]
     Dosage: UNKNOWN

REACTIONS (3)
  - EXCORIATION [None]
  - PRURITUS [None]
  - RASH ERYTHEMATOUS [None]
